FAERS Safety Report 24845355 (Version 1)
Quarter: 2025Q1

REPORT INFORMATION
  Report Type: Spontaneous
  Country: PT (occurrence: PT)
  Receive Date: 20250115
  Receipt Date: 20250115
  Transmission Date: 20250409
  Serious: Yes (Other)
  Sender: PFIZER
  Company Number: PT-PFM-2024-07297

PATIENT
  Age: 24 Day
  Sex: Male

DRUGS (2)
  1. SIROLIMUS [Suspect]
     Active Substance: SIROLIMUS
     Indication: Cutaneovisceral angiomatosis with thrombocytopenia
     Route: 065
  2. PROPRANOLOL [Concomitant]
     Active Substance: PROPRANOLOL HYDROCHLORIDE
     Indication: Thrombocytopenia
     Route: 065

REACTIONS (3)
  - Hypertriglyceridaemia [Recovered/Resolved]
  - Hypercholesterolaemia [Recovered/Resolved]
  - Off label use [Unknown]
